FAERS Safety Report 5136385-0 (Version None)
Quarter: 2006Q4

REPORT INFORMATION
  Report Type: 
  Country: None (occurrence: None)
  Receive Date: 20061027
  Receipt Date: 20060228
  Transmission Date: 20070319
  Serious: Yes (Hospitalization)
  Sender: FDA-Public Use
  Company Number: PE-BRISTOL-MYERS SQUIBB COMPANY-13299060

PATIENT
  Age: 56 Year
  Sex: Female

DRUGS (6)
  1. BLINDED: ARIPIPRAZOLE [Suspect]
     Indication: BIPOLAR I DISORDER
     Route: 048
     Dates: start: 20051219, end: 20060224
  2. HALOPERIDOL [Suspect]
     Indication: BIPOLAR I DISORDER
     Route: 048
     Dates: start: 20051219, end: 20060224
  3. BLINDED: PLACEBO [Suspect]
     Indication: BIPOLAR I DISORDER
     Route: 048
     Dates: start: 20051219, end: 20060224
  4. OLANZAPINE [Concomitant]
     Dates: start: 20060325
  5. LITHIUM CARBONATE [Concomitant]
     Dates: start: 20060325
  6. VALPROATE SODIUM [Concomitant]
     Dates: start: 20060325, end: 20060415

REACTIONS (1)
  - MANIA [None]
